FAERS Safety Report 13439185 (Version 1)
Quarter: 2017Q2

REPORT INFORMATION
  Report Type: Spontaneous
  Country: US (occurrence: US)
  Receive Date: 20170413
  Receipt Date: 20170413
  Transmission Date: 20170830
  Serious: No
  Sender: FDA-Public Use
  Company Number: US-ROCHE-1180670

PATIENT
  Sex: Female

DRUGS (31)
  1. FENTANYL. [Concomitant]
     Active Substance: FENTANYL
     Route: 061
  2. LOVENOX [Concomitant]
     Active Substance: ENOXAPARIN SODIUM
  3. ZYRTEC [Concomitant]
     Active Substance: CETIRIZINE HYDROCHLORIDE
     Route: 048
  4. NORCO [Concomitant]
     Active Substance: ACETAMINOPHEN\HYDROCODONE BITARTRATE
     Indication: PAIN
     Dosage: 10MG TO 325 MG
     Route: 048
  5. VALIUM [Concomitant]
     Active Substance: DIAZEPAM
  6. SIMVASTATIN. [Concomitant]
     Active Substance: SIMVASTATIN
     Route: 048
  7. HYDROCODONE/ACETAMINOPHEN [Concomitant]
     Active Substance: ACETAMINOPHEN\HYDROCODONE
     Indication: PAIN
     Dosage: 7.5 MG-500 MG
     Route: 048
  8. ALBUTEROL. [Concomitant]
     Active Substance: ALBUTEROL
     Dosage: 2 PUFFS EVERY 4-6 HOURS
     Route: 065
  9. AXID [Concomitant]
     Active Substance: NIZATIDINE
  10. CECLOR [Concomitant]
     Active Substance: CEFACLOR
  11. CELEBREX [Concomitant]
     Active Substance: CELECOXIB
  12. TRIAMTERENE/HYDROCHLOROTHIAZIDE [Concomitant]
     Active Substance: HYDROCHLOROTHIAZIDE\TRIAMTERENE
     Dosage: 37.5 TO 20 MG
     Route: 048
  13. DOCUSATE CALCIUM. [Concomitant]
     Active Substance: DOCUSATE CALCIUM
     Route: 048
  14. ZOLOFT [Concomitant]
     Active Substance: SERTRALINE HYDROCHLORIDE
     Route: 048
  15. ESTROPIPATE. [Concomitant]
     Active Substance: ESTROPIPATE
     Route: 048
  16. DOBUTAMINE [Concomitant]
     Active Substance: DOBUTAMINE\DOBUTAMINE HYDROCHLORIDE
  17. TAPE [Concomitant]
  18. PREGABALIN. [Concomitant]
     Active Substance: PREGABALIN
     Route: 048
  19. CELEBREX [Concomitant]
     Active Substance: CELECOXIB
     Route: 048
  20. ADVAIR DISKUS [Concomitant]
     Active Substance: FLUTICASONE PROPIONATE\SALMETEROL XINAFOATE
     Dosage: 500 MCG-50 MCG
     Route: 065
  21. ROCEPHIN [Suspect]
     Active Substance: CEFTRIAXONE SODIUM
     Indication: PRODUCT USED FOR UNKNOWN INDICATION
     Route: 065
  22. ZOLOFT [Concomitant]
     Active Substance: SERTRALINE HYDROCHLORIDE
  23. LYRICA [Concomitant]
     Active Substance: PREGABALIN
  24. ZOLOFT [Concomitant]
     Active Substance: SERTRALINE HYDROCHLORIDE
     Route: 048
  25. TRAMADOL. [Concomitant]
     Active Substance: TRAMADOL
     Route: 048
  26. MARCAINE [Concomitant]
     Active Substance: BUPIVACAINE HYDROCHLORIDE
  27. CONTRAST DYE NOS [Concomitant]
  28. OMEPRAZOLE. [Concomitant]
     Active Substance: OMEPRAZOLE
     Route: 048
  29. FLUTICASONE. [Concomitant]
     Active Substance: FLUTICASONE
     Route: 065
  30. KLOR-CON M20 [Concomitant]
     Active Substance: POTASSIUM CHLORIDE
     Route: 048
  31. ALPRAZOLAM. [Concomitant]
     Active Substance: ALPRAZOLAM
     Indication: ANXIETY
     Route: 048

REACTIONS (2)
  - Urticaria [Unknown]
  - Urogram [Unknown]
